FAERS Safety Report 18493834 (Version 39)
Quarter: 2022Q2

REPORT INFORMATION
  Report Type: Report from Study
  Country: CO (occurrence: CO)
  Receive Date: 20201111
  Receipt Date: 20220630
  Transmission Date: 20220720
  Serious: Yes (Hospitalization, Disabling, Other)
  Sender: FDA-Public Use
  Company Number: CO-TAKEDA-CO202027224

PATIENT
  Age: 6 Year
  Sex: Female
  Weight: 63.3 kg

DRUGS (9)
  1. VELAGLUCERASE ALFA [Suspect]
     Active Substance: VELAGLUCERASE ALFA
     Indication: Gaucher^s disease
     Dosage: 60 INTERNATIONAL UNIT/KILOGRAM
     Route: 042
     Dates: start: 20200316
  2. VELAGLUCERASE ALFA [Suspect]
     Active Substance: VELAGLUCERASE ALFA
     Dosage: 60 INTERNATIONAL UNIT/KILOGRAM, Q2WEEKS
     Route: 042
     Dates: start: 20200316
  3. VELAGLUCERASE ALFA [Suspect]
     Active Substance: VELAGLUCERASE ALFA
     Dosage: 3000 INTERNATIONAL UNIT, 2/WEEK
     Route: 042
     Dates: start: 20200316
  4. VELAGLUCERASE ALFA [Suspect]
     Active Substance: VELAGLUCERASE ALFA
     Dosage: 3000 INTERNATIONAL UNIT, Q2WEEKS
     Route: 042
     Dates: start: 20200316
  5. VELAGLUCERASE ALFA [Suspect]
     Active Substance: VELAGLUCERASE ALFA
     Dosage: 3468 INTERNATIONAL UNIT, Q2WEEKS
     Route: 042
     Dates: start: 20200316
  6. VELAGLUCERASE ALFA [Suspect]
     Active Substance: VELAGLUCERASE ALFA
     Dosage: 3798 INTERNATIONAL UNIT, 2/WEEK
     Route: 042
     Dates: start: 20200316
  7. VELAGLUCERASE ALFA [Suspect]
     Active Substance: VELAGLUCERASE ALFA
     Dosage: UNK
     Route: 065
  8. TOCILIZUMAB [Suspect]
     Active Substance: TOCILIZUMAB
     Indication: Product used for unknown indication
     Dosage: UNK
     Route: 065
  9. AMIKACIN SULFATE [Suspect]
     Active Substance: AMIKACIN SULFATE
     Indication: Urinary tract infection
     Dosage: UNK
     Route: 065
     Dates: end: 20211229

REACTIONS (86)
  - Urinary tract infection [Recovering/Resolving]
  - Dysuria [Not Recovered/Not Resolved]
  - Pruritus [Not Recovered/Not Resolved]
  - Pyrexia [Not Recovered/Not Resolved]
  - Walking disability [Unknown]
  - Retinal degeneration [Not Recovered/Not Resolved]
  - Asthenia [Not Recovered/Not Resolved]
  - Tracheomalacia [Recovered/Resolved]
  - Paralysis [Not Recovered/Not Resolved]
  - Osteonecrosis [Recovered/Resolved]
  - Wound haemorrhage [Recovering/Resolving]
  - Bone neoplasm [Not Recovered/Not Resolved]
  - Cellulitis [Not Recovered/Not Resolved]
  - COVID-19 [Recovered/Resolved]
  - Pneumonia klebsiella [Not Recovered/Not Resolved]
  - Immunodeficiency [Unknown]
  - Adverse event [Not Recovered/Not Resolved]
  - Mobility decreased [Not Recovered/Not Resolved]
  - Muscle atrophy [Recovering/Resolving]
  - Decreased appetite [Unknown]
  - Diarrhoea [Unknown]
  - Body height increased [Unknown]
  - Faeces discoloured [Not Recovered/Not Resolved]
  - Alopecia [Not Recovered/Not Resolved]
  - Skin discolouration [Not Recovered/Not Resolved]
  - Cough [Recovered/Resolved]
  - Poor venous access [Recovered/Resolved]
  - Chronic gastritis [Not Recovered/Not Resolved]
  - Myalgia [Not Recovered/Not Resolved]
  - Weight increased [Unknown]
  - Fall [Unknown]
  - Scratch [Recovering/Resolving]
  - Inflammation [Recovering/Resolving]
  - Ligament sprain [Recovering/Resolving]
  - Balance disorder [Recovering/Resolving]
  - Wound drainage [Recovering/Resolving]
  - Condition aggravated [Recovering/Resolving]
  - Skin laceration [Recovered/Resolved]
  - Pustule [Recovering/Resolving]
  - Limb discomfort [Recovering/Resolving]
  - Limb injury [Recovering/Resolving]
  - Oropharyngeal pain [Recovered/Resolved]
  - Pain [Not Recovered/Not Resolved]
  - Precocious puberty [Unknown]
  - Crying [Not Recovered/Not Resolved]
  - Metabolic alkalosis [Recovered/Resolved]
  - Hypoaesthesia [Not Recovered/Not Resolved]
  - Decreased immune responsiveness [Unknown]
  - Pain in extremity [Not Recovered/Not Resolved]
  - Musculoskeletal stiffness [Unknown]
  - Dysarthria [Unknown]
  - Cognitive disorder [Unknown]
  - Dyscalculia [Unknown]
  - Oedema peripheral [Not Recovered/Not Resolved]
  - Immune system disorder [Unknown]
  - Motor dysfunction [Unknown]
  - T-lymphocyte count decreased [Not Recovered/Not Resolved]
  - Puncture site pain [Recovered/Resolved]
  - Bronchitis [Unknown]
  - Unevaluable event [Not Recovered/Not Resolved]
  - Muscle spasms [Recovered/Resolved]
  - Chest pain [Not Recovered/Not Resolved]
  - Groin pain [Not Recovered/Not Resolved]
  - Breast pain [Unknown]
  - Muscular weakness [Not Recovered/Not Resolved]
  - Strabismus [Unknown]
  - Vaginal infection [Unknown]
  - Urinary incontinence [Unknown]
  - Scoliosis [Unknown]
  - Malaise [Recovering/Resolving]
  - Erythema [Recovered/Resolved]
  - Dizziness [Recovering/Resolving]
  - Abdominal pain upper [Not Recovered/Not Resolved]
  - Abdominal pain [Recovered/Resolved]
  - Arthralgia [Not Recovered/Not Resolved]
  - Urticaria [Recovering/Resolving]
  - Headache [Recovered/Resolved]
  - Fatigue [Not Recovered/Not Resolved]
  - Vomiting [Not Recovered/Not Resolved]
  - Product use issue [Unknown]
  - Product prescribing error [Unknown]
  - Wrong patient received product [Unknown]
  - Pharyngitis [Unknown]
  - Pollakiuria [Not Recovered/Not Resolved]
  - Abdominal pain upper [Not Recovered/Not Resolved]
  - Urine output increased [Not Recovered/Not Resolved]

NARRATIVE: CASE EVENT DATE: 20200316
